FAERS Safety Report 7618011-1 (Version None)
Quarter: 2011Q3

REPORT INFORMATION
  Report Type: 
  Country: None (occurrence: None)
  Receive Date: 20110718
  Receipt Date: 20110709
  Transmission Date: 20111222
  Serious: Yes (Death, Hospitalization)
  Sender: FDA-Public Use
  Company Number: PHHY2011MX47615

PATIENT
  Sex: Male

DRUGS (3)
  1. EXFORGE [Suspect]
     Indication: HYPERTENSION
     Dosage: 1 DF (160 MG OF VALSARTAN AND 10 MG OF AMLODIPINE)
     Route: 048
     Dates: start: 20110301, end: 20110601
  2. CORDARONE [Concomitant]
     Indication: HEART RATE
     Dosage: 1 DF/DAY
     Dates: start: 20080101
  3. CLOPIDOGREL BISULFATE [Concomitant]
     Dosage: 1 DF/DAY
     Dates: start: 20080101

REACTIONS (3)
  - MYOCARDIAL INFARCTION [None]
  - BRONCHITIS [None]
  - THROMBOSIS [None]
